FAERS Safety Report 9329445 (Version 1)
Quarter: 2013Q2

REPORT INFORMATION
  Report Type: Report from Study
  Country: US (occurrence: US)
  Receive Date: 20130604
  Receipt Date: 20130604
  Transmission Date: 20140414
  Serious: Yes (Hospitalization, Other)
  Sender: FDA-Public Use
  Company Number: US-GLAXOSMITHKLINE-Z0018383C

PATIENT
  Age: 66 Year
  Sex: Male
  Weight: 84.5 kg

DRUGS (6)
  1. TRAMETINIB [Suspect]
     Indication: MALIGNANT MELANOMA
     Dosage: 2MG PER DAY
     Route: 048
     Dates: start: 20121210
  2. DABRAFENIB [Suspect]
     Indication: MALIGNANT MELANOMA
     Dosage: 150MG TWICE PER DAY
     Route: 048
     Dates: start: 20121210, end: 20130419
  3. IBUPROFEN [Concomitant]
     Indication: PYREXIA
     Dosage: 400MG FOUR TIMES PER DAY
     Route: 048
     Dates: start: 20130422
  4. PREDNISONE [Concomitant]
     Indication: PROPHYLAXIS
     Dosage: 60MG PER DAY
     Route: 048
     Dates: start: 20130423, end: 20130424
  5. PREDNISONE [Concomitant]
     Indication: PYREXIA
     Dosage: 20MG PER DAY
     Route: 048
     Dates: start: 20130419
  6. NORMAL SALINE [Concomitant]
     Indication: DEHYDRATION
     Dosage: 1000ML SINGLE DOSE
     Route: 042
     Dates: start: 20130422, end: 20130422

REACTIONS (1)
  - Alanine aminotransferase increased [Recovered/Resolved]
